FAERS Safety Report 8661371 (Version 2)
Quarter: 2012Q4

REPORT INFORMATION
  Report Type: 
  Country: US (occurrence: US)
  Receive Date: 20120712
  Receipt Date: 20121015
  Transmission Date: 20130627
  Serious: Yes (Other)
  Sender: FDA-Public Use
  Company Number: US-BAYER-2012-069059

PATIENT
  Age: 33 Year
  Sex: Female
  Weight: 94.33 kg

DRUGS (11)
  1. YAZ [Suspect]
     Indication: CONTRACEPTION
     Dosage: UNK
     Dates: start: 201001, end: 201007
  2. METFORMIN [Concomitant]
     Dosage: 500 mg, BID
     Route: 048
     Dates: start: 20100409
  3. CLINDAMYCIN [Concomitant]
     Dosage: 150 mg, QID
     Route: 048
     Dates: start: 20100429
  4. CLINDAMYCIN [Concomitant]
     Dosage: 150 mg, QID
     Route: 048
     Dates: start: 20100506
  5. HYDROCODONE W/APAP [Concomitant]
     Indication: PAIN
     Dosage: 1-2 tablets every 4-6 hours as needed
     Route: 048
     Dates: start: 20100506
  6. DIAZEPAM [Concomitant]
     Dosage: 5 mg, TID
     Dates: start: 20100506
  7. ALPRAZOLAM [Concomitant]
     Indication: PAIN
     Dosage: 1 mg,1 tablet; 1 hour prior to procedure and may have additional tablet as needed
     Route: 048
     Dates: start: 20100506
  8. ONDANSETRON [Concomitant]
     Dosage: 8 mg, BID
     Route: 048
     Dates: start: 20100506
  9. DICLOFENAC SODIUM [Concomitant]
     Dosage: 50 mg, BID with food
     Route: 048
     Dates: start: 20100630
  10. ADDERALL XR [Concomitant]
     Dosage: 20 mg, OM
     Route: 048
     Dates: start: 201007
  11. IBUPROFEN [Concomitant]
     Dosage: UNK
     Dates: start: 20100702

REACTIONS (6)
  - Deep vein thrombosis [Recovering/Resolving]
  - Injury [Recovering/Resolving]
  - Emotional distress [None]
  - Fear of death [None]
  - Nervousness [None]
  - Depression [None]
